FAERS Safety Report 7033820-8 (Version None)
Quarter: 2010Q4

REPORT INFORMATION
  Report Type: 
  Country: None (occurrence: None)
  Receive Date: 20101007
  Receipt Date: 20100824
  Transmission Date: 20110411
  Serious: Yes (Death, Hospitalization, Other)
  Sender: FDA-Public Use
  Company Number: US-BAXTER-2010BH006201

PATIENT
  Age: 86 Year
  Sex: Male

DRUGS (15)
  1. HEPARIN SODIUM INJECTION [Suspect]
     Indication: HIP ARTHROPLASTY
     Route: 040
     Dates: start: 20080427
  2. HEPARIN SODIUM INJECTION [Suspect]
     Indication: LAPAROTOMY
     Route: 040
     Dates: start: 20080427
  3. HEPARIN SODIUM INJECTION [Suspect]
     Route: 065
     Dates: start: 20080423
  4. HEPARIN SODIUM INJECTION [Suspect]
     Route: 065
     Dates: start: 20080423
  5. HEPARIN SODIUM INJECTION [Suspect]
     Route: 042
     Dates: start: 20080429, end: 20100429
  6. HEPARIN SODIUM INJECTION [Suspect]
     Route: 042
     Dates: start: 20080429, end: 20100429
  7. OMEPRAZOLE [Concomitant]
     Indication: PRODUCT USED FOR UNKNOWN INDICATION
     Route: 065
  8. CYMBALTA [Concomitant]
     Indication: PRODUCT USED FOR UNKNOWN INDICATION
     Route: 065
  9. METFORMIN [Concomitant]
     Indication: PRODUCT USED FOR UNKNOWN INDICATION
     Route: 065
  10. AVODART [Concomitant]
     Indication: PRODUCT USED FOR UNKNOWN INDICATION
     Route: 065
  11. TAMSULOSIN HYDROCHLORIDE [Concomitant]
     Indication: PRODUCT USED FOR UNKNOWN INDICATION
     Route: 065
  12. IBUPROFEN [Concomitant]
     Indication: PRODUCT USED FOR UNKNOWN INDICATION
     Route: 065
  13. ASPIRIN [Concomitant]
     Indication: PRODUCT USED FOR UNKNOWN INDICATION
     Route: 065
  14. LISINOPRIL [Concomitant]
     Indication: PRODUCT USED FOR UNKNOWN INDICATION
     Route: 065
  15. MULTI-VITAMINS [Concomitant]
     Indication: PRODUCT USED FOR UNKNOWN INDICATION
     Route: 065

REACTIONS (12)
  - ATRIAL FIBRILLATION [None]
  - BLOOD PRESSURE DECREASED [None]
  - CARDIAC ARREST [None]
  - GASTRITIS [None]
  - GASTROINTESTINAL HAEMORRHAGE [None]
  - HAEMATEMESIS [None]
  - HEPARIN-INDUCED THROMBOCYTOPENIA [None]
  - HIP ARTHROPLASTY [None]
  - INFECTION [None]
  - INTESTINAL ISCHAEMIA [None]
  - PAIN [None]
  - SEPTIC SHOCK [None]
